FAERS Safety Report 8200737-2 (Version None)
Quarter: 2012Q1

REPORT INFORMATION
  Report Type: 
  Country: None (occurrence: None)
  Receive Date: 20120228
  Receipt Date: 20120220
  Transmission Date: 20120608
  Serious: Yes (Life-Threatening, Hospitalization)
  Sender: FDA-Public Use
  Company Number: 2012030714

PATIENT
  Age: 68 Year
  Sex: Female

DRUGS (3)
  1. DIOVAN HCT [Concomitant]
  2. PRIVIGEN [Suspect]
     Indication: MYASTHENIA GRAVIS CRISIS
     Dosage: 30 G QD, 100MG/ML SPECIFIED) INTRAVENOUS (NOT OTHERWISE
     Route: 042
     Dates: start: 20111206, end: 20111209
  3. METHYLPREDNISOLONE [Suspect]

REACTIONS (7)
  - ANXIETY [None]
  - CHEST PAIN [None]
  - GENERAL PHYSICAL HEALTH DETERIORATION [None]
  - ACUTE CORONARY SYNDROME [None]
  - BLOOD PRESSURE ABNORMAL [None]
  - CARDIOPULMONARY FAILURE [None]
  - ACUTE MYOCARDIAL INFARCTION [None]
